FAERS Safety Report 4416632-0 (Version None)
Quarter: 2004Q3

REPORT INFORMATION
  Report Type: 
  Country: None (occurrence: None)
  Receive Date: 20040802
  Receipt Date: 20040716
  Transmission Date: 20050211
  Serious: Yes (Hospitalization)
  Sender: FDA-Public Use
  Company Number: 201614

PATIENT
  Age: 67 Year
  Sex: Female
  Weight: 90.7194 kg

DRUGS (4)
  1. AVONEX [Suspect]
     Indication: MULTIPLE SCLEROSIS
     Dosage: 30 MCG QW IM
     Route: 030
     Dates: start: 19960101, end: 20030101
  2. AVONEX [Suspect]
     Indication: MULTIPLE SCLEROSIS
     Dosage: 30 MCG QW IM
     Route: 030
     Dates: start: 20030101
  3. BACLOFEN [Concomitant]
  4. MULTIVITAMIN [Concomitant]

REACTIONS (6)
  - BREAST CANCER FEMALE [None]
  - DEPRESSION [None]
  - JOINT SWELLING [None]
  - OEDEMA PERIPHERAL [None]
  - URINARY INCONTINENCE [None]
  - WEIGHT INCREASED [None]
